FAERS Safety Report 7347061-8 (Version None)
Quarter: 2011Q1

REPORT INFORMATION
  Report Type: 
  Country: None (occurrence: None)
  Receive Date: 20110303
  Receipt Date: 20110228
  Transmission Date: 20110831
  Serious: Yes (Other)
  Sender: FDA-Public Use
  Company Number: 015448

PATIENT
  Sex: Male
  Weight: 66 kg

DRUGS (5)
  1. ENTOCORT EC [Concomitant]
  2. CIMZIA [Suspect]
     Indication: CROHN'S DISEASE
     Dosage: (400 MG,  SUBCUTANEOUS)
     Route: 058
     Dates: start: 20100407, end: 20100407
  3. PREDNISONE [Concomitant]
  4. LOMOTIL /00034001/ [Concomitant]
  5. XIFAXAN [Concomitant]

REACTIONS (1)
  - ANAPHYLACTIC SHOCK [None]
